FAERS Safety Report 14237475 (Version 2)
Quarter: 2017Q4

REPORT INFORMATION
  Report Type: Spontaneous
  Country: US (occurrence: US)
  Receive Date: 20171129
  Receipt Date: 20171228
  Transmission Date: 20180321
  Serious: Yes (Death, Hospitalization, Other)
  Sender: FDA-Public Use
  Company Number: US-TEVA-825218USA

PATIENT
  Age: 78 Year
  Sex: Female

DRUGS (24)
  1. DONEPEZIL HCL [Concomitant]
     Active Substance: DONEPEZIL HYDROCHLORIDE
  2. LANTUS SOLOSTAR [Concomitant]
     Active Substance: INSULIN GLARGINE
  3. ATENOLOL. [Concomitant]
     Active Substance: ATENOLOL
  4. TRIPLE ANTIBIOTIC [Concomitant]
     Active Substance: BACITRACIN ZINC\NEOMYCIN\NEOMYCIN SULFATE\POLYMYXIN B SULFATE
  5. BACITRACIN. [Concomitant]
     Active Substance: BACITRACIN
  6. CLONAZEPAM. [Concomitant]
     Active Substance: CLONAZEPAM
  7. DOCUSATE SODIUM. [Concomitant]
     Active Substance: DOCUSATE SODIUM
  8. OXYBUTYNIN CHLORIDE ER [Concomitant]
     Active Substance: OXYBUTYNIN CHLORIDE
  9. DAILY VITAMIN [Concomitant]
     Active Substance: VITAMINS
  10. RANITIDINE HCL [Concomitant]
     Active Substance: RANITIDINE HYDROCHLORIDE
  11. VITAMIN D3 [Concomitant]
     Active Substance: CHOLECALCIFEROL
  12. HALOPERIDOL. [Concomitant]
     Active Substance: HALOPERIDOL
  13. ASPIRIN. [Concomitant]
     Active Substance: ASPIRIN
  14. FISH OIL [Concomitant]
     Active Substance: FISH OIL
  15. OFLOXACIN. [Concomitant]
     Active Substance: OFLOXACIN
  16. ACIDOPHILUS [Concomitant]
     Active Substance: LACTOBACILLUS ACIDOPHILUS
  17. HUMALOG [Concomitant]
     Active Substance: INSULIN LISPRO
  18. METHYLPREDNISOLONE. [Concomitant]
     Active Substance: METHYLPREDNISOLONE
  19. HYDROCODONE-ACETAMINOPHEN [Concomitant]
     Active Substance: ACETAMINOPHEN\HYDROCODONE
  20. CEPACOL EXTRA STRENGTH [Concomitant]
  21. HYDROXYZINE HYDROCHLORIDE. [Concomitant]
     Active Substance: HYDROXYZINE HYDROCHLORIDE
  22. ATORVASTATIN CALCIUM. [Concomitant]
     Active Substance: ATORVASTATIN CALCIUM
  23. AUSTEDO [Suspect]
     Active Substance: DEUTETRABENAZINE
     Indication: HUNTINGTON^S DISEASE
     Dosage: 24 MILLIGRAM DAILY;
     Route: 048
     Dates: start: 20170803
  24. AUSTEDO [Suspect]
     Active Substance: DEUTETRABENAZINE
     Dosage: 48 MILLIGRAM DAILY; DOSE OR AMOUNT 12MG; FREQUENCY 2TABS TWICE DAILY
     Route: 048

REACTIONS (2)
  - Hospitalisation [Recovered/Resolved]
  - Death [Fatal]

NARRATIVE: CASE EVENT DATE: 20171026
